FAERS Safety Report 9252614 (Version 1)
Quarter: 2013Q2

REPORT INFORMATION
  Report Type: Spontaneous
  Country: IT (occurrence: IT)
  Receive Date: 20130424
  Receipt Date: 20130424
  Transmission Date: 20140414
  Serious: Yes (Hospitalization)
  Sender: FDA-Public Use
  Company Number: IT-PFIZER INC-2013124506

PATIENT
  Age: 15 Year
  Sex: Male

DRUGS (6)
  1. ZITROMAX [Suspect]
     Indication: INTENTIONAL SELF-INJURY
     Dosage: 3 DF, TOTAL DOSE (3 UNITS TOTAL)
     Route: 048
     Dates: start: 20130218, end: 20130218
  2. RAMIPRIL [Suspect]
     Indication: INTENTIONAL SELF-INJURY
     Dosage: 7 DF, TOTAL DOSE (7 UNITS TOTAL)
     Route: 048
     Dates: start: 20130218, end: 20130218
  3. PURSENNID [Suspect]
     Indication: INTENTIONAL SELF-INJURY
     Dosage: 30 DF, TOTAL DOSE (30 UNITS TOTAL)
     Route: 048
     Dates: start: 20130218, end: 20130218
  4. PARACETAMOL [Suspect]
     Indication: INTENTIONAL SELF-INJURY
     Dosage: 4 DF, TOTAL DOSE (4 UNITS TOTAL)
     Route: 048
     Dates: start: 20130218, end: 20130218
  5. ALMOTRIPTAN MALATE [Suspect]
     Indication: INTENTIONAL SELF-INJURY
     Dosage: 5 DF, TOTAL DOSE (5 UNITS TOTAL)
     Route: 048
     Dates: start: 20130218, end: 20130218
  6. LEVOCETIRIZINE DIHYDROCHLORIDE [Suspect]
     Indication: INTENTIONAL SELF-INJURY
     Dosage: 15 DF, TOTAL DOSE (15 UNITS TOTAL)
     Route: 048
     Dates: start: 20130218, end: 20130218

REACTIONS (3)
  - Intentional overdose [Unknown]
  - Confusional state [Unknown]
  - Somnolence [Unknown]
